FAERS Safety Report 22281289 (Version 1)
Quarter: 2023Q2

REPORT INFORMATION
  Report Type: Other
  Country: US (occurrence: US)
  Receive Date: 20230504
  Receipt Date: 20230504
  Transmission Date: 20230721
  Serious: Yes (Hospitalization)
  Sender: FDA-Public Use
  Company Number: US-GBT-022067

PATIENT
  Sex: Female

DRUGS (2)
  1. OXBRYTA [Suspect]
     Active Substance: VOXELOTOR
     Indication: Sickle cell disease
     Route: 048
     Dates: start: 202301
  2. VITAMIN B12 [Suspect]
     Active Substance: CYANOCOBALAMIN
     Dates: start: 20230421

REACTIONS (4)
  - Sickle cell anaemia with crisis [Unknown]
  - Diarrhoea [Unknown]
  - Constipation [Unknown]
  - Bowel movement irregularity [Unknown]
